FAERS Safety Report 5217074-0 (Version None)
Quarter: 2007Q1

REPORT INFORMATION
  Report Type: 
  Country: None (occurrence: None)
  Receive Date: 20070124
  Receipt Date: 20070115
  Transmission Date: 20070707
  Serious: Yes (Other)
  Sender: FDA-Public Use
  Company Number: NL-ELI_LILLY_AND_COMPANY-NL200611002035

PATIENT
  Age: 65 Year
  Sex: Female

DRUGS (3)
  1. FORTEO [Suspect]
     Indication: OSTEOPOROSIS
     Dosage: 20 UNK, UNK
     Route: 058
     Dates: start: 20050824, end: 20060809
  2. CALCICHEW [Concomitant]
     Indication: OSTEOPOROSIS
     Dosage: 1000 MG, UNKNOWN
     Route: 065
  3. ALFACALCIDOL [Concomitant]
     Indication: OSTEOPOROSIS
     Dosage: 0.25 UG, UNKNOWN
     Route: 065

REACTIONS (3)
  - ANAEMIA [None]
  - COLON CANCER [None]
  - NAUSEA [None]
